FAERS Safety Report 12815338 (Version 2)
Quarter: 2016Q4

REPORT INFORMATION
  Report Type: Report from Study
  Country: CA (occurrence: CA)
  Receive Date: 20161005
  Receipt Date: 20161115
  Transmission Date: 20170207
  Serious: Yes (Other)
  Sender: FDA-Public Use
  Company Number: CA-JNJFOC-20160927317

PATIENT
  Sex: Female
  Weight: 51 kg

DRUGS (1)
  1. REMICADE [Suspect]
     Active Substance: INFLIXIMAB
     Indication: RHEUMATOID ARTHRITIS
     Route: 042

REACTIONS (7)
  - Infusion related reaction [Recovered/Resolved]
  - Joint swelling [Unknown]
  - Fatigue [Unknown]
  - Infusion site pain [Recovered/Resolved]
  - Poor quality sleep [Unknown]
  - Arthralgia [Not Recovered/Not Resolved]
  - Syncope [Recovered/Resolved]
